FAERS Safety Report 5455741-4 (Version None)
Quarter: 2007Q3

REPORT INFORMATION
  Report Type: 
  Country: None (occurrence: None)
  Receive Date: 20070917
  Receipt Date: 20070917
  Transmission Date: 20080115
  Serious: No
  Sender: FDA-Public Use
  Company Number: None

PATIENT

DRUGS (1)
  1. SIMVASTATIN [Suspect]
     Dates: start: 20070730, end: 20070914

REACTIONS (1)
  - PHARMACEUTICAL PRODUCT COMPLAINT [None]
